FAERS Safety Report 8767569 (Version 3)
Quarter: 2013Q4

REPORT INFORMATION
  Report Type: Report from Study
  Country: DE (occurrence: DE)
  Receive Date: 20120903
  Receipt Date: 20131204
  Transmission Date: 20140711
  Serious: Yes (Hospitalization)
  Sender: FDA-Public Use
  Company Number: PHHO2012DE012670

PATIENT
  Sex: 0

DRUGS (4)
  1. DECORTIN H [Suspect]
     Indication: PANCREAS TRANSPLANT
     Dosage: 10 MG, UNK
     Route: 048
  2. CELLCEPT [Suspect]
     Indication: PANCREAS TRANSPLANT
     Dosage: 1500 MG, UNK
     Route: 048
  3. PROGRAF [Suspect]
     Indication: PANCREAS TRANSPLANT
     Dosage: 5 MG, UNK
     Route: 048
  4. NO TREATMENT RECEIVED [Suspect]
     Indication: PANCREAS TRANSPLANT
     Dosage: NO TREATMENT RECEIVED

REACTIONS (1)
  - Cystitis bacterial [Recovered/Resolved]
